FAERS Safety Report 5254133-0 (Version None)
Quarter: 2007Q1

REPORT INFORMATION
  Report Type: 
  Country: None (occurrence: None)
  Receive Date: 20070302
  Receipt Date: 20070221
  Transmission Date: 20070707
  Serious: Yes (Other)
  Sender: FDA-Public Use
  Company Number: NO-ROCHE-484567

PATIENT
  Sex: Male

DRUGS (4)
  1. VALIUM [Suspect]
     Indication: DRUG USE FOR UNKNOWN INDICATION
     Route: 065
  2. IMOVANE [Suspect]
     Route: 065
  3. SOBRIL [Suspect]
     Route: 065
  4. XANOR [Suspect]
     Route: 065

REACTIONS (11)
  - AGGRESSION [None]
  - BLOOD CHOLESTEROL INCREASED [None]
  - DEPRESSION [None]
  - DRUG DEPENDENCE [None]
  - HYPERTENSION [None]
  - INTENTIONAL OVERDOSE [None]
  - PERSONALITY DISORDER [None]
  - PSYCHOTIC DISORDER [None]
  - SEXUAL ABUSE [None]
  - SUICIDAL IDEATION [None]
  - WEIGHT INCREASED [None]
